FAERS Safety Report 7825029-2 (Version None)
Quarter: 2011Q4

REPORT INFORMATION
  Report Type: 
  Country: None (occurrence: None)
  Receive Date: 20111019
  Receipt Date: 20110818
  Transmission Date: 20120403
  Serious: No
  Sender: FDA-Public Use
  Company Number: US-BRISTOL-MYERS SQUIBB COMPANY-15649643

PATIENT
  Age: 51 Year
  Sex: Male

DRUGS (1)
  1. AVALIDE [Suspect]
     Indication: HYPERTENSION
     Dosage: ALSO TOOK AVALIDE 300/12.5MG, HALF HAD BEEN TAKEN. NDC NUMBER:2776-32

REACTIONS (6)
  - DRUG INEFFECTIVE [None]
  - BLOOD PRESSURE INCREASED [None]
  - OEDEMA PERIPHERAL [None]
  - PAIN IN EXTREMITY [None]
  - MEDICATION ERROR [None]
  - BACK PAIN [None]
